FAERS Safety Report 7518059-1 (Version None)
Quarter: 2011Q2

REPORT INFORMATION
  Report Type: 
  Country: None (occurrence: None)
  Receive Date: 20110531
  Receipt Date: 20110531
  Transmission Date: 20111010
  Serious: Yes (Life-Threatening, Hospitalization, Disabling, Other)
  Sender: FDA-Public Use
  Company Number: None

PATIENT
  Age: 60 Year
  Sex: Male
  Weight: 104.3273 kg

DRUGS (1)
  1. IV PREP ANTISEPTIC WIPES [Suspect]

REACTIONS (5)
  - STAPHYLOCOCCAL INFECTION [None]
  - SKIN INFECTION [None]
  - PRODUCT QUALITY ISSUE [None]
  - SEPSIS [None]
  - BLOOD GLUCOSE INCREASED [None]
